FAERS Safety Report 7440563-5 (Version None)
Quarter: 2011Q2

REPORT INFORMATION
  Report Type: 
  Country: None (occurrence: None)
  Receive Date: 20110427
  Receipt Date: 20110421
  Transmission Date: 20111010
  Serious: Yes (Death)
  Sender: FDA-Public Use
  Company Number: A0924477A

PATIENT
  Age: 57 Year
  Sex: Female

DRUGS (4)
  1. TYKERB [Suspect]
     Dosage: 1250MG PER DAY
     Route: 048
  2. XELODA [Suspect]
     Dosage: 150MG UNKNOWN
     Route: 065
  3. COUMADIN [Concomitant]
  4. AMIODARONE [Concomitant]

REACTIONS (1)
  - BREAST CANCER METASTATIC [None]
